FAERS Safety Report 19767649 (Version 3)
Quarter: 2021Q3

REPORT INFORMATION
  Report Type: Report from Study
  Country: AU (occurrence: AU)
  Receive Date: 20210831
  Receipt Date: 20210914
  Transmission Date: 20211014
  Serious: Yes (Hospitalization)
  Sender: FDA-Public Use
  Company Number: AU-ROCHE-2895874

PATIENT
  Age: 80 Year
  Sex: Male
  Weight: 82.4 kg

DRUGS (21)
  1. METOCLOPRAMIDE. [Concomitant]
     Active Substance: METOCLOPRAMIDE
     Indication: NAUSEA
     Route: 048
     Dates: start: 20210421, end: 20210819
  2. QUESTRAN [Concomitant]
     Active Substance: CHOLESTYRAMINE
     Indication: DIARRHOEA
     Route: 048
     Dates: start: 202106
  3. THYROXINE [Concomitant]
     Active Substance: LEVOTHYROXINE
     Indication: HYPOTHYROIDISM
     Route: 048
     Dates: start: 2020
  4. OXYGEN. [Concomitant]
     Active Substance: OXYGEN
     Indication: DYSPNOEA
     Dosage: MEDICATION DOSE 2 OTHER
     Route: 055
     Dates: start: 20200918
  5. CETIRIZINE [Concomitant]
     Active Substance: CETIRIZINE HYDROCHLORIDE
     Route: 048
     Dates: start: 20210823
  6. PARACETAMOL [Concomitant]
     Active Substance: ACETAMINOPHEN
     Indication: ANALGESIC THERAPY
     Route: 048
     Dates: start: 20210819
  7. CODEINE [Concomitant]
     Active Substance: CODEINE
     Indication: HEADACHE
     Route: 048
     Dates: start: 202002
  8. ONDANSETRON [Concomitant]
     Active Substance: ONDANSETRON
     Indication: NAUSEA
     Dates: start: 20210820
  9. COLOXYL WITH SENNA [Concomitant]
     Active Substance: DOCUSATE SODIUM\SENNOSIDES A AND B
     Dosage: MEDICATION DOSE 2 TABLET
     Route: 048
     Dates: start: 20210821
  10. FISH OIL [Concomitant]
     Active Substance: FISH OIL
     Route: 048
     Dates: start: 2005, end: 20210819
  11. PANADOL [Concomitant]
     Active Substance: ACETAMINOPHEN
  12. TEMAZEPAM. [Concomitant]
     Active Substance: TEMAZEPAM
     Route: 048
     Dates: start: 20210819
  13. PIRFENIDONE. [Suspect]
     Active Substance: PIRFENIDONE
     Indication: IDIOPATHIC PULMONARY FIBROSIS
     Dosage: START DATE OF MOST RECENT DOSE OF STUDY DRUG?PRIOR TO AE/SAE  20?SEP?2019
     Route: 048
     Dates: start: 201806
  14. NINTEDANIB [Suspect]
     Active Substance: NINTEDANIB
     Indication: IDIOPATHIC PULMONARY FIBROSIS
     Dosage: START DATE OF MOST RECENT DOSE  OF STUDY DRUG?PRIOR TO AE/SAE  19/AUG/2021
     Route: 048
     Dates: start: 20200518
  15. BISOLVON [Concomitant]
     Active Substance: BROMHEXINE HYDROCHLORIDE
     Indication: COUGH
     Route: 048
     Dates: start: 20200915, end: 20210818
  16. BISOLVON [Concomitant]
     Active Substance: BROMHEXINE HYDROCHLORIDE
     Route: 048
     Dates: start: 20210819
  17. TAPENTADOL [Concomitant]
     Active Substance: TAPENTADOL
     Indication: ANALGESIC THERAPY
     Route: 048
     Dates: start: 20210820
  18. ZINPENTRAXIN ALFA. [Suspect]
     Active Substance: ZINPENTRAXIN ALFA
     Indication: IDIOPATHIC PULMONARY FIBROSIS
     Dosage: START AND END DATE OF MOST RECENT DOSE OF STUDY DRUG PRIOR TO AE/SAE 13?AUG?2021 10:30 AM AND 11:30
     Route: 042
     Dates: start: 20210813
  19. PROLIA [Concomitant]
     Active Substance: DENOSUMAB
     Indication: OSTEOPOROSIS
     Route: 030
     Dates: start: 201706
  20. FISH OIL [Concomitant]
     Active Substance: FISH OIL
     Route: 048
     Dates: start: 20210820
  21. LOPERAMIDE [Concomitant]
     Active Substance: LOPERAMIDE
     Indication: DIARRHOEA
     Route: 048
     Dates: start: 20201001

REACTIONS (1)
  - Nephrolithiasis [Recovered/Resolved]

NARRATIVE: CASE EVENT DATE: 20210819
